FAERS Safety Report 26111340 (Version 2)
Quarter: 2025Q4

REPORT INFORMATION
  Report Type: Report from Study
  Country: EU (occurrence: EU)
  Receive Date: 20251202
  Receipt Date: 20251222
  Transmission Date: 20260117
  Serious: Yes (Hospitalization)
  Sender: ABBVIE
  Company Number: EU-ABBVIE-6568842

PATIENT
  Age: 62 Year
  Sex: Male

DRUGS (3)
  1. FOSCARBIDOPA\FOSLEVODOPA [Suspect]
     Active Substance: FOSCARBIDOPA\FOSLEVODOPA
     Indication: Parkinson^s disease
     Dosage: LOW DOSE 0.50ML/H
     Route: 058
     Dates: start: 20251110, end: 20251215
  2. FOSCARBIDOPA\FOSLEVODOPA [Suspect]
     Active Substance: FOSCARBIDOPA\FOSLEVODOPA
     Dosage: LOW DOSE 0.50ML/H, BASE DOSE 0.52/ML AND HIGH FLOW 0.54/ML EXTRA DOSE 0.20
     Route: 058
     Dates: start: 202511, end: 20251215
  3. ONGENTYS [Concomitant]
     Active Substance: OPICAPONE
     Indication: Product used for unknown indication
     Dosage: AT NIGHT
     Dates: start: 20251118

REACTIONS (7)
  - Hallucination, visual [Not Recovered/Not Resolved]
  - Psychotic disorder [Unknown]
  - Hyperkinesia [Unknown]
  - Musculoskeletal stiffness [Unknown]
  - Motor dysfunction [Unknown]
  - Fear [Not Recovered/Not Resolved]
  - Contusion [Recovering/Resolving]

NARRATIVE: CASE EVENT DATE: 20251101
